FAERS Safety Report 4510937-0 (Version None)
Quarter: 2004Q4

REPORT INFORMATION
  Report Type: 
  Country: None (occurrence: None)
  Receive Date: 20041025
  Receipt Date: 20040113
  Transmission Date: 20050328
  Serious: Yes (Hospitalization, Other)
  Sender: FDA-Public Use
  Company Number: NSADSS2002039737

PATIENT
  Age: 5 Year
  Sex: Male
  Weight: 21.3191 kg

DRUGS (10)
  1. REMICADE [Suspect]
     Indication: COLITIS ULCERATIVE
     Dosage: 1 IN 1 AS NECESSARY, INTRAVENOUS DRIP; SEE IMAGE
     Route: 041
     Dates: start: 20020401, end: 20020401
  2. MULTIVITAMIN [Concomitant]
  3. CALCIUM (CALCIUM) [Concomitant]
  4. IRON SUPPLEMENT (IRON) [Concomitant]
  5. SULFASALAZINE [Concomitant]
  6. MERCAPTOPURINE [Concomitant]
  7. BENADRYL [Concomitant]
  8. NIFEDIPINE [Concomitant]
  9. SOLU-MEDROL [Concomitant]
  10. PREDNISONE [Concomitant]

REACTIONS (5)
  - DEHYDRATION [None]
  - HYPERTENSION [None]
  - INFLUENZA LIKE ILLNESS [None]
  - JOINT SWELLING [None]
  - SERUM SICKNESS [None]
